FAERS Safety Report 6911108-0 (Version None)
Quarter: 2010Q3

REPORT INFORMATION
  Report Type: 
  Country: None (occurrence: None)
  Receive Date: 20100806
  Receipt Date: 20100727
  Transmission Date: 20110219
  Serious: Yes (Hospitalization, Other)
  Sender: FDA-Public Use
  Company Number: US-AMGEN-KDL427550

PATIENT
  Sex: Female

DRUGS (4)
  1. ENBREL [Suspect]
     Indication: PSORIATIC ARTHROPATHY
     Route: 058
     Dates: start: 20060101
  2. ENBREL [Suspect]
     Indication: PSORIASIS
  3. HUMIRA [Concomitant]
  4. ATIVAN [Concomitant]

REACTIONS (15)
  - ANXIETY [None]
  - BLOOD PRESSURE INCREASED [None]
  - BLOOD TEST ABNORMAL [None]
  - CHEST PAIN [None]
  - CONVULSION [None]
  - DECREASED APPETITE [None]
  - DEHYDRATION [None]
  - DEPRESSION [None]
  - HAEMATEMESIS [None]
  - HALLUCINATION [None]
  - INFLUENZA LIKE ILLNESS [None]
  - INSOMNIA [None]
  - NEUROPATHY PERIPHERAL [None]
  - PSORIASIS [None]
  - PYREXIA [None]
